FAERS Safety Report 8810446 (Version 1)
Quarter: 2012Q4

REPORT INFORMATION
  Report Type: 
  Country: US (occurrence: US)
  Receive Date: 20120927
  Receipt Date: 20120927
  Transmission Date: 20130627
  Serious: No
  Sender: FDA-Public Use
  Company Number: US-009507513-1209USA007495

PATIENT
  Sex: Male

DRUGS (2)
  1. REMERON [Suspect]
     Indication: INSOMNIA
     Dosage: UNK
     Route: 048
     Dates: start: 2012
  2. REMERON [Suspect]
     Dosage: UNK
     Route: 048
     Dates: start: 2008, end: 2011

REACTIONS (3)
  - Visual impairment [Not Recovered/Not Resolved]
  - Drug ineffective for unapproved indication [Not Recovered/Not Resolved]
  - Wrong technique in drug usage process [Unknown]
